FAERS Safety Report 9716314 (Version 1)
Quarter: 2013Q4

REPORT INFORMATION
  Report Type: Spontaneous
  Country: US (occurrence: US)
  Receive Date: 20131127
  Receipt Date: 20131127
  Transmission Date: 20140711
  Serious: Yes (Death)
  Sender: FDA-Public Use
  Company Number: US-AMGEN-USASP2013082682

PATIENT
  Age: 92 Year
  Sex: Male

DRUGS (2)
  1. PROLIA [Suspect]
     Indication: OSTEOPOROSIS
     Route: 065
  2. GLIMEPIRIDE [Concomitant]
     Dosage: 1 MG, UNK

REACTIONS (1)
  - Death [Fatal]
